FAERS Safety Report 9056556 (Version 1)
Quarter: 2013Q1

REPORT INFORMATION
  Report Type: Spontaneous
  Country: ES (occurrence: ES)
  Receive Date: 20130204
  Receipt Date: 20130204
  Transmission Date: 20140127
  Serious: Yes (Other)
  Sender: FDA-Public Use
  Company Number: ES-GLAXOSMITHKLINE-B0864312A

PATIENT
  Age: 41 Year
  Sex: Male

DRUGS (4)
  1. TROBALT [Suspect]
     Indication: EPILEPSY
     Dosage: 300MG THREE TIMES PER DAY
     Route: 048
     Dates: start: 20120228, end: 20120710
  2. TROBALT [Concomitant]
     Indication: EPILEPSY
     Dosage: 300MG TWICE PER DAY
     Route: 048
     Dates: start: 20120119, end: 20120227
  3. PAROXETINE [Concomitant]
     Indication: DEPRESSION
     Dosage: 20MG PER DAY
     Route: 048
     Dates: start: 20110601, end: 20120201
  4. SERTRALINE [Concomitant]
     Indication: DEPRESSION
     Dosage: 25MG TWICE PER DAY
     Route: 048

REACTIONS (1)
  - Organic erectile dysfunction [Recovered/Resolved]
